FAERS Safety Report 7023454-3 (Version None)
Quarter: 2010Q3

REPORT INFORMATION
  Report Type: 
  Country: None (occurrence: None)
  Receive Date: 20100929
  Receipt Date: 20100915
  Transmission Date: 20110219
  Serious: Yes (Death, Hospitalization)
  Sender: FDA-Public Use
  Company Number: 2010AL000076

PATIENT
  Age: 59 Year
  Sex: Female

DRUGS (3)
  1. FOLOTYN [Suspect]
     Indication: MYCOSIS FUNGOIDES
     Dosage: 60 MG; IV
     Route: 042
     Dates: start: 20100107, end: 20100107
  2. CON MEDS [Concomitant]
  3. PREV MEDS [Concomitant]

REACTIONS (4)
  - MUCOSAL INFLAMMATION [None]
  - NEUTROPENIA [None]
  - RECALL PHENOMENON [None]
  - TOXIC EPIDERMAL NECROLYSIS [None]
